FAERS Safety Report 8524054-6 (Version None)
Quarter: 2012Q3

REPORT INFORMATION
  Report Type: 
  Country: None (occurrence: None)
  Receive Date: 20120720
  Receipt Date: 20120712
  Transmission Date: 20120928
  Serious: Yes (Death, Hospitalization)
  Sender: FDA-Public Use
  Company Number: IT-CELGENEUS-083-21880-12062543

PATIENT
  Sex: Male

DRUGS (7)
  1. REVLIMID [Suspect]
     Indication: NON-HODGKIN'S LYMPHOMA
     Dosage: 25 MILLIGRAM
     Route: 048
     Dates: start: 20090930, end: 20091204
  2. ITRACONAZOLE [Concomitant]
     Route: 041
  3. ACYCLOVIR [Concomitant]
     Route: 048
  4. METHYLPREDNISOLONE [Concomitant]
     Route: 041
  5. CYCLOPHOSPHAMIDE [Concomitant]
     Route: 048
  6. DEXAMETHASONE [Concomitant]
     Indication: NON-HODGKIN'S LYMPHOMA
     Route: 065
  7. MATULANE [Concomitant]
     Route: 048

REACTIONS (3)
  - PYREXIA [None]
  - THROMBOCYTOPENIA [None]
  - NON-HODGKIN'S LYMPHOMA [None]
